FAERS Safety Report 15267345 (Version 1)
Quarter: 2018Q3

REPORT INFORMATION
  Report Type: Spontaneous
  Country: US (occurrence: US)
  Receive Date: 20180724
  Receipt Date: 20180724
  Transmission Date: 20181010
  Serious: Yes (Hospitalization)
  Sender: FDA-Public Use
  Company Number: None

PATIENT
  Age: 42 Year
  Sex: Female

DRUGS (1)
  1. CORTICOSTEROID NOS [Suspect]
     Active Substance: CORTICOSTEROID NOS
     Indication: PAIN
     Dates: end: 20160706

REACTIONS (4)
  - Hemiplegic migraine [None]
  - Product use issue [None]
  - Seizure [None]
  - Loss of consciousness [None]

NARRATIVE: CASE EVENT DATE: 20160706
